FAERS Safety Report 13451845 (Version 1)
Quarter: 2017Q2

REPORT INFORMATION
  Report Type: Spontaneous
  Country: US (occurrence: US)
  Receive Date: 20170417
  Receipt Date: 20170417
  Transmission Date: 20170830
  Serious: No
  Sender: FDA-Public Use
  Company Number: None

PATIENT
  Age: 60 Year
  Sex: Female

DRUGS (1)
  1. IBRANCE [Suspect]
     Active Substance: PALBOCICLIB
     Indication: BREAST CANCER
     Dosage: 125MG 1 DAILY FOR 21 DAYS ON, THEN 7 DAYS OFF ORAL
     Route: 048
     Dates: start: 20170325

REACTIONS (4)
  - Neuropathy peripheral [None]
  - Swelling [None]
  - Pain in extremity [None]
  - Skin discolouration [None]

NARRATIVE: CASE EVENT DATE: 20170415
